FAERS Safety Report 19090992 (Version 1)
Quarter: 2021Q2

REPORT INFORMATION
  Report Type: Spontaneous
  Country: CO (occurrence: CO)
  Receive Date: 20210405
  Receipt Date: 20210405
  Transmission Date: 20210717
  Serious: Yes (Death, Hospitalization)
  Sender: FDA-Public Use
  Company Number: CO-SAMOHPHARM-2021001280

PATIENT

DRUGS (3)
  1. CARBAGLU [Suspect]
     Active Substance: CARGLUMIC ACID
     Indication: HYPERAMMONAEMIA
     Dosage: 1400 MILLIGRAM, Q8H
     Dates: start: 20180823, end: 20210325
  2. SODIUM BENZOATE [Concomitant]
     Active Substance: SODIUM BENZOATE
     Indication: UREA CYCLE DISORDER
     Dosage: 8 CC C/8 H
     Dates: start: 20051201, end: 20210325
  3. SODIUM BENZOATE [Concomitant]
     Active Substance: SODIUM BENZOATE
     Indication: ORNITHINE TRANSCARBAMOYLASE DEFICIENCY

REACTIONS (3)
  - Hyperammonaemia [Fatal]
  - Pneumonia [Not Recovered/Not Resolved]
  - Cardiac arrest [Fatal]

NARRATIVE: CASE EVENT DATE: 20210321
